FAERS Safety Report 5005027-7 (Version None)
Quarter: 2006Q2

REPORT INFORMATION
  Report Type: 
  Country: None (occurrence: None)
  Receive Date: 20060512
  Receipt Date: 20060502
  Transmission Date: 20061013
  Serious: Yes (Hospitalization)
  Sender: FDA-Public Use
  Company Number: 2006060839

PATIENT
  Age: 60 Year
  Sex: Male

DRUGS (7)
  1. ATARAX [Suspect]
     Indication: ILL-DEFINED DISORDER
     Dosage: 25 MG (25 MG, 1 IN 1 D), ORAL
     Route: 048
  2. TRANXENE [Suspect]
     Indication: ILL-DEFINED DISORDER
     Dosage: 1 DF, ORAL
     Route: 048
  3. TERCIAN (CYAMEMAZINE) [Suspect]
     Indication: ILL-DEFINED DISORDER
     Dosage: ORAL
     Route: 048
  4. REVIA [Suspect]
     Indication: ILL-DEFINED DISORDER
     Dosage: 1 DF, ORAL
     Route: 048
  5. BIRODOGYL (METRONIDAZOLE, SPIRAMYCIN) [Suspect]
     Indication: ILL-DEFINED DISORDER
     Dosage: ORAL
     Route: 048
     Dates: start: 20060322, end: 20060323
  6. CITALOPRAM HYDROBROMIDE (CITALOPRAM) [Concomitant]
  7. ZOPICLONE (ZOPICLONE) [Concomitant]

REACTIONS (7)
  - AMNESIA [None]
  - HEADACHE [None]
  - LOSS OF CONSCIOUSNESS [None]
  - MALAISE [None]
  - SEDATION [None]
  - TEARFULNESS [None]
  - TOOTH EXTRACTION [None]
